FAERS Safety Report 8474061-7 (Version None)
Quarter: 2012Q2

REPORT INFORMATION
  Report Type: 
  Country: None (occurrence: None)
  Receive Date: 20120628
  Receipt Date: 20110831
  Transmission Date: 20120825
  Serious: Yes (Other)
  Sender: FDA-Public Use
  Company Number: US-MYLANLABS-2011S1004144

PATIENT
  Age: 27 Year
  Sex: Male

DRUGS (10)
  1. FLUVOXAMINE MALEATE [Concomitant]
  2. CLOZAPINE [Suspect]
     Indication: SCHIZOPHRENIA
     Dates: end: 20110318
  3. LOVAZA [Concomitant]
  4. HALOPERIDOL [Concomitant]
  5. AMLODIPINE [Concomitant]
  6. DOCUSATE [Concomitant]
  7. BENZTROPINE MESYLATE [Concomitant]
  8. DIVALPROEX SODIUM [Concomitant]
  9. CLOZAPINE [Suspect]
     Dates: start: 20110419
  10. PROPRANOLOL [Concomitant]

REACTIONS (1)
  - GRANULOCYTOPENIA [None]
